FAERS Safety Report 5001849-7 (Version None)
Quarter: 2006Q2

REPORT INFORMATION
  Report Type: 
  Country: None (occurrence: None)
  Receive Date: 20060515
  Receipt Date: 20060503
  Transmission Date: 20061013
  Serious: Yes (Death, Congenital Anomaly)
  Sender: FDA-Public Use
  Company Number: FR-GLAXOSMITHKLINE-B0422583B

PATIENT
  Sex: Female

DRUGS (1)
  1. LAMICTAL [Suspect]
     Indication: EPILEPSY
     Dosage: 300MG PER DAY
     Dates: start: 20030901

REACTIONS (20)
  - CAMPTODACTYLY ACQUIRED [None]
  - CEREBELLAR HYPOPLASIA [None]
  - CEREBRAL VENTRICLE DILATATION [None]
  - CONGENITAL GENITOURINARY ABNORMALITY [None]
  - CONGENITAL MUSCULOSKELETAL ANOMALY [None]
  - CONGENITAL OSTEODYSTROPHY [None]
  - CRANIOSYNOSTOSIS [None]
  - DRUG EXPOSURE DURING PREGNANCY [None]
  - EAR MALFORMATION [None]
  - HEAD DEFORMITY [None]
  - HYPERTELORISM OF ORBIT [None]
  - INTESTINAL MALROTATION [None]
  - KIDNEY SMALL [None]
  - MACROCEPHALY [None]
  - MULTIPLE CONGENITAL ABNORMALITIES [None]
  - NEURAL TUBE DEFECT [None]
  - PLACENTAL DISORDER [None]
  - PULMONARY HYPOPLASIA [None]
  - SINGLE UMBILICAL ARTERY [None]
  - SPINA BIFIDA [None]
